FAERS Safety Report 5034063-X (Version None)
Quarter: 2006Q2

REPORT INFORMATION
  Report Type: 
  Country: None (occurrence: None)
  Receive Date: 20060621
  Receipt Date: 20060606
  Transmission Date: 20061013
  Serious: Yes (Hospitalization)
  Sender: FDA-Public Use
  Company Number: 14175

PATIENT
  Age: 47 Year
  Sex: Female
  Weight: 64.8644 kg

DRUGS (1)
  1. PACLITAXEL [Suspect]
     Indication: BREAST CANCER
     Dosage: 282 FORTNIGHTLY IV
     Route: 042
     Dates: start: 20050902, end: 20050902

REACTIONS (3)
  - HEART RATE INCREASED [None]
  - PULMONARY TOXICITY [None]
  - RESPIRATORY FAILURE [None]
